FAERS Safety Report 20530832 (Version 1)
Quarter: 2022Q1

REPORT INFORMATION
  Report Type: Spontaneous
  Country: US (occurrence: US)
  Receive Date: 20220301
  Receipt Date: 20220301
  Transmission Date: 20220423
  Serious: No
  Sender: FDA-Public Use
  Company Number: US-IGSA-BIG0015233

PATIENT
  Age: 56 Year
  Sex: Male
  Weight: 116 kg

DRUGS (8)
  1. PROLASTIN-C LIQUID [Suspect]
     Active Substance: .ALPHA.1-PROTEINASE INHIBITOR HUMAN
     Indication: Alpha-1 antitrypsin deficiency
     Dosage: 6960 MILLIGRAM, Q.WK.
     Route: 042
     Dates: start: 20210707
  2. PROLASTIN-C LIQUID [Suspect]
     Active Substance: .ALPHA.1-PROTEINASE INHIBITOR HUMAN
     Dosage: 6960 MILLIGRAM, Q.WK.
     Route: 042
     Dates: start: 20210628
  3. METOPROLOL [Concomitant]
     Active Substance: METOPROLOL
  4. LORAZEPAM [Concomitant]
     Active Substance: LORAZEPAM
  5. METFORMIN [Concomitant]
     Active Substance: METFORMIN HYDROCHLORIDE
  6. IRBESARTAN [Concomitant]
     Active Substance: IRBESARTAN
  7. CIALIS [Concomitant]
     Active Substance: TADALAFIL
  8. RYBELSUS [Concomitant]
     Active Substance: SEMAGLUTIDE

REACTIONS (6)
  - Oral pruritus [Recovered/Resolved]
  - Tongue pruritus [Recovered/Resolved]
  - Tongue disorder [Recovered/Resolved]
  - Papule [Not Recovered/Not Resolved]
  - Anxiety [Recovered/Resolved]
  - Head discomfort [Recovered/Resolved]

NARRATIVE: CASE EVENT DATE: 20210628
